FAERS Safety Report 9342260 (Version 1)
Quarter: 2013Q2

REPORT INFORMATION
  Report Type: Spontaneous
  Country: GB (occurrence: None)
  Receive Date: 20130607
  Receipt Date: 20130607
  Transmission Date: 20140414
  Serious: Yes (Hospitalization)
  Sender: FDA-Public Use
  Company Number: AUR-APL-2013-04462

PATIENT
  Age: 50 Year
  Sex: Female

DRUGS (7)
  1. TERBINAFINE (TERBINAFINE) [Suspect]
     Indication: ONYCHOMYCOSIS
     Route: 048
     Dates: start: 20130130, end: 20130203
  2. ATORVASTATIN (ATORVASTATIN) [Suspect]
     Indication: PRODUCT USED FOR UNKNOWN INDICATION
     Dosage: 40 MG ( 40MG, 1 IN 1 D) UNK
  3. INSULIN GLARGINE [Suspect]
     Indication: PRODUCT USED FOR UNKNOWN INDICATION
  4. LANSOPRAZOLE (LANSOPRAZOLE) [Suspect]
     Indication: PRODUCT USED FOR UNKNOWN INDICATION
     Dates: start: 20130130, end: 20130130
  5. NOVORAPID [Suspect]
     Indication: PRODUCT USED FOR UNKNOWN INDICATION
  6. RAMIPRIL (RAMIPRIL) [Suspect]
     Indication: PRODUCT USED FOR UNKNOWN INDICATION
     Dosage: 5 MG (5 MG, 1 IN 1 D)
  7. SERTRALINE [Suspect]
     Indication: PRODUCT USED FOR UNKNOWN INDICATION
     Dosage: 50 MG (50 MG, 1 IN 1 D)

REACTIONS (4)
  - Rash generalised [None]
  - Rash erythematous [None]
  - No therapeutic response [None]
  - Inflammation [None]
